FAERS Safety Report 8548345-8 (Version None)
Quarter: 2012Q3

REPORT INFORMATION
  Report Type: 
  Country: None (occurrence: None)
  Receive Date: 20120730
  Receipt Date: 20120725
  Transmission Date: 20120928
  Serious: Yes (Hospitalization)
  Sender: FDA-Public Use
  Company Number: US-JNJFOC-20120601007

PATIENT
  Sex: Male
  Weight: 93 kg

DRUGS (18)
  1. GABAPENTIN [Concomitant]
     Route: 065
  2. ABIRATERONE ACETATE [Suspect]
     Route: 048
     Dates: start: 20120614, end: 20120622
  3. LOPRESSOR [Concomitant]
     Route: 065
  4. PRAVACHOL [Concomitant]
     Route: 065
  5. DUTASTERIDE [Suspect]
     Route: 048
     Dates: start: 20120525, end: 20120528
  6. ISORDIL [Concomitant]
     Route: 065
  7. ROPINIROLE [Concomitant]
     Route: 065
  8. MULTI-VITAMINS [Concomitant]
     Route: 065
  9. ASPIRIN [Concomitant]
     Route: 065
  10. ABIRATERONE ACETATE [Suspect]
     Route: 048
     Dates: start: 20120329, end: 20120529
  11. DUTASTERIDE [Suspect]
     Indication: PROSTATE CANCER METASTATIC
     Route: 048
     Dates: start: 20120626
  12. ZANTAC [Concomitant]
     Route: 065
  13. ABIRATERONE ACETATE [Suspect]
     Indication: PROSTATE CANCER METASTATIC
     Route: 048
     Dates: start: 20120626
  14. DUTASTERIDE [Suspect]
     Route: 048
     Dates: start: 20120614, end: 20120622
  15. TRAZODONE HYDROCHLORIDE [Concomitant]
     Route: 065
  16. PREDNISONE [Suspect]
     Indication: PROSTATE CANCER METASTATIC
     Route: 048
     Dates: end: 20120529
  17. COLACE [Concomitant]
     Route: 065
  18. TRICOR [Concomitant]
     Route: 065

REACTIONS (5)
  - URINARY TRACT INFECTION [None]
  - ANGINA UNSTABLE [None]
  - PNEUMONIA [None]
  - LIPASE INCREASED [None]
  - PANCREATITIS ACUTE [None]
